FAERS Safety Report 14653618 (Version 3)
Quarter: 2021Q4

REPORT INFORMATION
  Report Type: Spontaneous
  Country: FR (occurrence: FR)
  Receive Date: 20180319
  Receipt Date: 20211107
  Transmission Date: 20220303
  Serious: Yes (Hospitalization)
  Sender: FDA-Public Use
  Company Number: FR-AUROBINDO-AUR-APL-2018-014630

PATIENT
  Age: 42 Year
  Sex: Male
  Weight: 92 kg

DRUGS (15)
  1. ALPRAZOLAM [Suspect]
     Active Substance: ALPRAZOLAM
     Indication: Product used for unknown indication
     Dosage: UNK
     Route: 048
     Dates: start: 20170608, end: 20170608
  2. ZOPICLONE [Suspect]
     Active Substance: ZOPICLONE
     Indication: Product used for unknown indication
     Dosage: UNK
     Route: 065
     Dates: start: 20170608, end: 20170608
  3. LOXAPINE [Suspect]
     Active Substance: LOXAPINE
     Indication: Schizophrenia
     Dosage: UNK
     Route: 048
     Dates: end: 20170608
  4. ABILIFY [Suspect]
     Active Substance: ARIPIPRAZOLE
     Indication: Schizophrenia
     Dosage: UNK
     Route: 048
     Dates: end: 20170608
  5. ASPIRIN [Suspect]
     Active Substance: ASPIRIN
     Indication: Product used for unknown indication
     Dosage: UNK
     Route: 048
     Dates: end: 20170608
  6. ARAVA [Suspect]
     Active Substance: LEFLUNOMIDE
     Indication: Palindromic rheumatism
     Dosage: UNK
     Route: 048
     Dates: end: 20170608
  7. TRANXENE [Suspect]
     Active Substance: CLORAZEPATE DIPOTASSIUM
     Indication: Product used for unknown indication
     Dosage: UNK
     Route: 048
  8. VENLAFAXINE HYDROCHLORIDE [Suspect]
     Active Substance: VENLAFAXINE HYDROCHLORIDE
     Indication: Depression
     Dosage: UNK
     Route: 048
     Dates: end: 20170608
  9. OXAZEPAM [Suspect]
     Active Substance: OXAZEPAM
     Indication: Product used for unknown indication
     Dosage: UNK
     Route: 048
  10. CISATRACURIUM [Suspect]
     Active Substance: CISATRACURIUM
     Indication: Product used for unknown indication
     Dosage: UNK
     Route: 042
     Dates: start: 20170608, end: 20170610
  11. AMOXICILLIN\CLAVULANIC ACID [Suspect]
     Active Substance: AMOXICILLIN\CLAVULANIC ACID
     Indication: Pneumonia
     Dosage: UNK
     Route: 042
     Dates: start: 20170608, end: 20170615
  12. TRIMEPRAZINE [Suspect]
     Active Substance: TRIMEPRAZINE
     Indication: Product used for unknown indication
     Dosage: UNK
     Route: 048
     Dates: end: 20170608
  13. PROMETHAZINE [Suspect]
     Active Substance: PROMETHAZINE HYDROCHLORIDE
     Indication: Product used for unknown indication
     Dosage: UNK
     Route: 048
     Dates: start: 20170608, end: 20170608
  14. TRIHEXYPHENIDYL HYDROCHLORIDE [Suspect]
     Active Substance: TRIHEXYPHENIDYL HYDROCHLORIDE
     Indication: Product used for unknown indication
     Dosage: UNK
     Route: 065
     Dates: end: 20170808
  15. LOVENOX [Suspect]
     Active Substance: ENOXAPARIN SODIUM
     Indication: Venous thrombosis
     Dosage: 2 DOSAGE FORM, ONCE A DAY
     Route: 058
     Dates: start: 20170608, end: 20170615

REACTIONS (4)
  - Blood triglycerides increased [Recovering/Resolving]
  - Blood cholesterol increased [Recovered/Resolved]
  - Hepatitis acute [Recovered/Resolved]
  - Lipase increased [Recovered/Resolved]

NARRATIVE: CASE EVENT DATE: 20170616
